FAERS Safety Report 5071347-3 (Version None)
Quarter: 2006Q3

REPORT INFORMATION
  Report Type: 
  Country: None (occurrence: None)
  Receive Date: 20060804
  Receipt Date: 20060120
  Transmission Date: 20061208
  Serious: No
  Sender: FDA-Public Use
  Company Number: US-AMGEN-US165838

PATIENT
  Sex: Male
  Weight: 74 kg

DRUGS (25)
  1. ARANESP [Suspect]
     Indication: ANAEMIA
     Route: 058
     Dates: start: 20041223, end: 20051212
  2. LUNESTA [Concomitant]
     Route: 048
     Dates: start: 20051104
  3. OXYGEN [Concomitant]
  4. FLOMAX [Concomitant]
     Route: 048
     Dates: start: 20021211
  5. CORDARONE [Concomitant]
     Route: 048
     Dates: start: 20021211
  6. COUMADIN [Concomitant]
     Route: 048
     Dates: start: 20051207
  7. IMODIUM [Concomitant]
     Route: 048
     Dates: start: 20050105
  8. MYCOSTATIN [Concomitant]
     Route: 048
     Dates: start: 20050301
  9. ALLOPURINOL [Concomitant]
     Route: 048
     Dates: start: 20060117
  10. PROVENTIL [Concomitant]
     Dates: start: 20050826
  11. LANOXIN [Concomitant]
     Route: 048
     Dates: start: 20050512
  12. LASIX [Concomitant]
     Route: 048
     Dates: start: 20050112
  13. OXANDRIN (BTG PHARMACEUTICALS) [Concomitant]
     Route: 048
     Dates: start: 20051219
  14. OXYCODONE HCL [Concomitant]
     Route: 048
     Dates: start: 20050826
  15. PROSCAR [Concomitant]
     Route: 048
     Dates: start: 20051104
  16. MIRALAX [Concomitant]
     Route: 048
     Dates: start: 20050218
  17. VIAGRA [Concomitant]
     Route: 048
     Dates: start: 20060105
  18. AUGMENTIN '125' [Concomitant]
     Route: 048
     Dates: start: 20060127, end: 20060203
  19. MULTIVIT [Concomitant]
     Route: 048
     Dates: start: 20040921
  20. VITAMIN E [Concomitant]
     Route: 048
     Dates: start: 20040921
  21. GLEEVEC [Concomitant]
  22. HYDREA [Concomitant]
  23. OXANDRIN (BTG PHARMACEUTICALS) [Concomitant]
  24. PREDNISONE TAB [Concomitant]
  25. THALIDOMIDE [Concomitant]

REACTIONS (1)
  - DRUG INEFFECTIVE [None]
